FAERS Safety Report 7423754-9 (Version None)
Quarter: 2011Q2

REPORT INFORMATION
  Report Type: 
  Country: None (occurrence: None)
  Receive Date: 20110419
  Receipt Date: 20110412
  Transmission Date: 20111010
  Serious: Yes (Death, Hospitalization)
  Sender: FDA-Public Use
  Company Number: US-ALEXION-A201100516

PATIENT

DRUGS (1)
  1. SOLIRIS [Suspect]
     Indication: HAEMOLYTIC URAEMIC SYNDROME
     Route: 042

REACTIONS (5)
  - DEATH [None]
  - PNEUMOTHORAX [None]
  - LUNG INFILTRATION [None]
  - HAEMOTHORAX [None]
  - THROMBOCYTOPENIA [None]
